FAERS Safety Report 16999016 (Version 2)
Quarter: 2019Q4

REPORT INFORMATION
  Report Type: Report from Study
  Country: DE (occurrence: DE)
  Receive Date: 20191106
  Receipt Date: 20191125
  Transmission Date: 20200122
  Serious: Yes (Other)
  Sender: FDA-Public Use
  Company Number: NVSC2019DE026142

PATIENT
  Age: 75 Year
  Sex: Male

DRUGS (11)
  1. LEVOTHYROXINE. [Concomitant]
     Active Substance: LEVOTHYROXINE
     Indication: PRODUCT USED FOR UNKNOWN INDICATION
     Dosage: 75 OT, QD
     Route: 065
  2. TOREM [Concomitant]
     Active Substance: TORSEMIDE
     Indication: PRODUCT USED FOR UNKNOWN INDICATION
     Dosage: 10 OT, QD
     Route: 065
  3. DIGITOXINE [Concomitant]
     Indication: PRODUCT USED FOR UNKNOWN INDICATION
     Dosage: 0.07 OT, QD
     Route: 065
  4. ALLOPURINOL. [Concomitant]
     Active Substance: ALLOPURINOL
     Indication: PRODUCT USED FOR UNKNOWN INDICATION
     Dosage: 100 OT, QD
     Route: 065
  5. LEUPRORELIN [Suspect]
     Active Substance: LEUPROLIDE ACETATE
     Indication: PROSTATE CANCER
     Dosage: 5 MG EVERY 3 MONTH
     Route: 058
     Dates: start: 20180914
  6. ELIQUIS [Concomitant]
     Active Substance: APIXABAN
     Indication: PRODUCT USED FOR UNKNOWN INDICATION
     Dosage: 2.5 OT, QD
     Route: 065
  7. LEUPRORELIN [Suspect]
     Active Substance: LEUPROLIDE ACETATE
     Dosage: 5 MG EVERY 3 MONTH
     Route: 058
     Dates: start: 20180914
  8. LEUPRORELIN [Suspect]
     Active Substance: LEUPROLIDE ACETATE
     Dosage: 5 MG EVERY 3 MONTH
     Route: 058
     Dates: start: 20180914
  9. RAMIPRIL. [Concomitant]
     Active Substance: RAMIPRIL
     Indication: PRODUCT USED FOR UNKNOWN INDICATION
     Dosage: 5 OT, QD
     Route: 065
  10. LEUPRORELIN [Suspect]
     Active Substance: LEUPROLIDE ACETATE
     Dosage: 5 MG EVERY 3 MONTH
     Route: 058
     Dates: start: 20180914
  11. BISOPROLOL [Concomitant]
     Active Substance: BISOPROLOL
     Indication: PRODUCT USED FOR UNKNOWN INDICATION
     Dosage: 5 OT, QD
     Route: 065

REACTIONS (4)
  - Androgen deficiency [Unknown]
  - Lumbosacral radiculopathy [Unknown]
  - Psoriatic arthropathy [Not Recovered/Not Resolved]
  - Pulmonary mass [Unknown]

NARRATIVE: CASE EVENT DATE: 20191001
